FAERS Safety Report 16965729 (Version 6)
Quarter: 2020Q4

REPORT INFORMATION
  Report Type: Spontaneous
  Country: US (occurrence: US)
  Receive Date: 20191028
  Receipt Date: 20201111
  Transmission Date: 20210113
  Serious: Yes (Other)
  Sender: FDA-Public Use
  Company Number: US-PFIZER INC-2019292503

PATIENT
  Age: 58 Year
  Sex: Female

DRUGS (1)
  1. PRISTIQ EXTENDED-RELEASE [Suspect]
     Active Substance: DESVENLAFAXINE SUCCINATE
     Indication: DEPRESSION
     Dosage: 100 MG, 3X/DAY
     Dates: start: 2015

REACTIONS (3)
  - Prescribed overdose [Unknown]
  - Neoplasm progression [Unknown]
  - Throat cancer [Unknown]

NARRATIVE: CASE EVENT DATE: 2015
